FAERS Safety Report 20872745 (Version 1)
Quarter: 2022Q2

REPORT INFORMATION
  Report Type: Spontaneous
  Country: CN (occurrence: CN)
  Receive Date: 20220525
  Receipt Date: 20220525
  Transmission Date: 20220720
  Serious: Yes (Hospitalization, Other)
  Sender: FDA-Public Use
  Company Number: CN-009507513-2205CHN005866

PATIENT
  Age: 49 Year
  Sex: Female
  Weight: 55 kg

DRUGS (4)
  1. CILASTATIN SODIUM\IMIPENEM [Suspect]
     Active Substance: CILASTATIN SODIUM\IMIPENEM
     Indication: Myelosuppression
     Dosage: 500 MG QID IV DRIP
     Route: 041
     Dates: start: 20220429, end: 20220501
  2. CILASTATIN SODIUM\IMIPENEM [Suspect]
     Active Substance: CILASTATIN SODIUM\IMIPENEM
     Indication: Sepsis
  3. CILASTATIN SODIUM\IMIPENEM [Suspect]
     Active Substance: CILASTATIN SODIUM\IMIPENEM
     Indication: Bacteraemia
  4. LINEZOLID [Concomitant]
     Active Substance: LINEZOLID
     Indication: Gram stain positive
     Dosage: 0.6 GRAM BID
     Route: 041
     Dates: start: 20220430, end: 20220501

REACTIONS (6)
  - Hallucination [Recovering/Resolving]
  - Unresponsive to stimuli [Recovering/Resolving]
  - Mental impairment [Recovering/Resolving]
  - Communication disorder [Recovering/Resolving]
  - Cognitive disorder [Recovering/Resolving]
  - Abnormal behaviour [Recovering/Resolving]

NARRATIVE: CASE EVENT DATE: 20220430
